FAERS Safety Report 7828822-5 (Version None)
Quarter: 2011Q4

REPORT INFORMATION
  Report Type: 
  Country: None (occurrence: None)
  Receive Date: 20111020
  Receipt Date: 20111012
  Transmission Date: 20120403
  Serious: Yes (Hospitalization)
  Sender: FDA-Public Use
  Company Number: JP-BAYER-2011-098296

PATIENT
  Age: 66 Year
  Sex: Female

DRUGS (1)
  1. ASPIRIN [Suspect]
     Indication: CEREBRAL INFARCTION
     Dosage: UNK
     Route: 048

REACTIONS (1)
  - GASTRIC HAEMORRHAGE [None]
